FAERS Safety Report 10205643 (Version 2)
Quarter: 2015Q1

REPORT INFORMATION
  Report Type: Spontaneous
  Country: JP (occurrence: JP)
  Receive Date: 20140529
  Receipt Date: 20150223
  Transmission Date: 20150720
  Serious: Yes (Hospitalization, Other)
  Sender: FDA-Public Use
  Company Number: JP-009507513-1405JPN014659

PATIENT
  Age: 70 Year
  Sex: Female
  Weight: 52 kg

DRUGS (12)
  1. REBETOL [Suspect]
     Active Substance: RIBAVIRIN
     Dosage: 200 MG, QD
     Route: 048
     Dates: start: 20140604, end: 20140923
  2. PEGINTRON [Suspect]
     Active Substance: PEGINTERFERON ALFA-2B
     Indication: CHRONIC HEPATITIS C
     Dosage: 80 MICROGRAM, QW
     Route: 058
     Dates: start: 20140408, end: 20140923
  3. SIMEPREVIR [Suspect]
     Active Substance: SIMEPREVIR
     Indication: CHRONIC HEPATITIS C
     Dosage: 100 MG, QD
     Route: 048
     Dates: start: 20140408
  4. VOLTAREN [Concomitant]
     Active Substance: DICLOFENAC SODIUM
     Dosage: 25 MG, QD
     Route: 048
     Dates: start: 20140408
  5. REBETOL [Suspect]
     Active Substance: RIBAVIRIN
     Indication: CHRONIC HEPATITIS C
     Dosage: 600 MG, QD
     Route: 048
     Dates: start: 20140408, end: 20140509
  6. REBETOL [Suspect]
     Active Substance: RIBAVIRIN
     Dosage: UNK
  7. UNASYN (SULTAMICILLIN) [Concomitant]
     Dosage: 6 G, QD
     Route: 042
     Dates: start: 20140508, end: 20140513
  8. TEPRENONE [Concomitant]
     Active Substance: TEPRENONE
     Dosage: 150 MG, QD
     Route: 048
     Dates: start: 20140604
  9. REBETOL [Suspect]
     Active Substance: RIBAVIRIN
     Dosage: 200 MG, QD
     Route: 048
     Dates: start: 20140512, end: 20140522
  10. SELBEX [Concomitant]
     Active Substance: TEPRENONE
     Dosage: 150 MG, QD
     Route: 048
     Dates: start: 20140408
  11. UNASYN (SULTAMICILLIN) [Concomitant]
     Dosage: 6 G, QD
     Route: 042
     Dates: start: 20140807
  12. REBETOL [Suspect]
     Active Substance: RIBAVIRIN
     Dosage: 200 MG, QOD
     Route: 048
     Dates: start: 20140523, end: 20140603

REACTIONS (7)
  - Pneumonia staphylococcal [Recovered/Resolved]
  - Pneumonia [Recovered/Resolved]
  - C-reactive protein increased [Recovered/Resolved]
  - Pyrexia [Recovered/Resolved]
  - Anaemia [Not Recovered/Not Resolved]
  - Pruritus [Recovered/Resolved]
  - Loss of consciousness [Recovered/Resolved]

NARRATIVE: CASE EVENT DATE: 20140408
